FAERS Safety Report 7937295-3 (Version None)
Quarter: 2011Q4

REPORT INFORMATION
  Report Type: 
  Country: None (occurrence: None)
  Receive Date: 20111123
  Receipt Date: 20110830
  Transmission Date: 20120403
  Serious: Yes (Other)
  Sender: FDA-Public Use
  Company Number: US-AMGEN-USASP2011044574

PATIENT
  Age: 66 Year
  Sex: Male

DRUGS (8)
  1. PROCRIT [Suspect]
     Indication: ANAEMIA
     Dosage: UNK UNK, QWK
     Dates: start: 20110314, end: 20110614
  2. LEXAPRO [Concomitant]
     Dosage: UNK
  3. PROMETHAZINE HCL [Concomitant]
     Dosage: UNK
  4. RIBAVIRIN [Suspect]
     Indication: HEPATITIS C
     Dosage: 1200 MG, UNK
     Dates: start: 20101018, end: 20110629
  5. NEUPOGEN [Suspect]
     Indication: LEUKOPENIA
     Dosage: UNK, QWK
     Route: 058
     Dates: start: 20110306, end: 20110614
  6. LISINOPRIL [Concomitant]
     Dosage: UNK
  7. XANAX [Concomitant]
     Dosage: UNK
  8. PEGINTERFERON ALFA-2A [Suspect]
     Indication: HEPATITIS C
     Dosage: 180 MUG, QWK
     Dates: start: 20101018, end: 20110629

REACTIONS (25)
  - WEIGHT INCREASED [None]
  - RESPIRATORY DISORDER [None]
  - WHITE BLOOD CELL COUNT ABNORMAL [None]
  - IRRITABILITY [None]
  - INFLUENZA LIKE ILLNESS [None]
  - OEDEMA PERIPHERAL [None]
  - HYPERSENSITIVITY [None]
  - HYPERHIDROSIS [None]
  - WEIGHT DECREASED [None]
  - DEPRESSION [None]
  - CELLULITIS [None]
  - SKIN ULCER [None]
  - ANAEMIA [None]
  - PERICARDITIS [None]
  - HAEMOGLOBIN DECREASED [None]
  - ALANINE AMINOTRANSFERASE INCREASED [None]
  - THROMBOCYTOPENIA [None]
  - NAUSEA [None]
  - PRURITUS [None]
  - ORAL DISORDER [None]
  - ASPARTATE AMINOTRANSFERASE INCREASED [None]
  - RASH MACULAR [None]
  - FATIGUE [None]
  - NIGHT SWEATS [None]
  - HEADACHE [None]
